FAERS Safety Report 15653562 (Version 1)
Quarter: 2018Q4

REPORT INFORMATION
  Report Type: Spontaneous
  Country: US (occurrence: US)
  Receive Date: 20181124
  Receipt Date: 20181124
  Transmission Date: 20190205
  Serious: Yes (Other)
  Sender: FDA-Public Use
  Company Number: US-AMGEN-USASP2018165472

PATIENT
  Age: 34 Year
  Sex: Female

DRUGS (4)
  1. ENBREL [Suspect]
     Active Substance: ETANERCEPT
     Indication: FIBROMYALGIA
  2. PREDNISONE. [Concomitant]
     Active Substance: PREDNISONE
     Indication: SYSTEMIC LUPUS ERYTHEMATOSUS
     Dosage: 30 MG, QD
  3. ENBREL [Suspect]
     Active Substance: ETANERCEPT
     Indication: SYSTEMIC LUPUS ERYTHEMATOSUS
     Dosage: UNK
     Route: 065
  4. PREDNISONE. [Concomitant]
     Active Substance: PREDNISONE
     Indication: FIBROMYALGIA

REACTIONS (9)
  - Fibromyalgia [Unknown]
  - Pain in extremity [Unknown]
  - Rash pruritic [Unknown]
  - Rash pustular [Unknown]
  - Systemic lupus erythematosus [Unknown]
  - Muscle spasms [Unknown]
  - Rash maculo-papular [Unknown]
  - Skin discolouration [Unknown]
  - Off label use [Unknown]
